FAERS Safety Report 22541700 (Version 1)
Quarter: 2023Q2

REPORT INFORMATION
  Report Type: Spontaneous
  Country: US (occurrence: None)
  Receive Date: 20230608
  Receipt Date: 20230608
  Transmission Date: 20230721
  Serious: Yes (Hospitalization, Other)
  Sender: FDA-Public Use
  Company Number: None

PATIENT
  Sex: Female
  Weight: 60.5 kg

DRUGS (8)
  1. ENTYVIO [Suspect]
     Active Substance: VEDOLIZUMAB
     Indication: Crohn^s disease
     Dosage: OTHER FREQUENCY : EVERY 8 WEEKS;?
     Route: 042
     Dates: end: 20221231
  2. PREDNISONE [Concomitant]
     Active Substance: PREDNISONE
     Dates: start: 19760101, end: 20230528
  3. Valganciclovir 450 mg tablets [Concomitant]
     Dates: start: 20230308
  4. METRONIDAZOLE [Concomitant]
     Active Substance: METRONIDAZOLE
     Dates: start: 20230428, end: 20230505
  5. CEFDINIR [Concomitant]
     Active Substance: CEFDINIR
     Dates: start: 20230428, end: 20230505
  6. Apixaban 5 mg tablets [Concomitant]
  7. Omeprazole 20 mg tablets [Concomitant]
  8. Bupropion SR 150 mg tablets [Concomitant]

REACTIONS (16)
  - Arthritis bacterial [None]
  - Cellulitis [None]
  - Bursitis [None]
  - Urinary tract infection [None]
  - Cytomegalovirus oesophagitis [None]
  - Diverticulitis [None]
  - Cognitive disorder [None]
  - Thinking abnormal [None]
  - Memory impairment [None]
  - Aphasia [None]
  - Memory impairment [None]
  - Confusional state [None]
  - Hallucination, auditory [None]
  - Gait disturbance [None]
  - Epstein-Barr virus test positive [None]
  - Enterovirus test positive [None]
